FAERS Safety Report 22179448 (Version 3)
Quarter: 2023Q2

REPORT INFORMATION
  Report Type: Spontaneous
  Country: US (occurrence: US)
  Receive Date: 20230406
  Receipt Date: 20230629
  Transmission Date: 20230722
  Serious: Yes (Hospitalization)
  Sender: FDA-Public Use
  Company Number: US-SA-SAC20230404000986

PATIENT
  Sex: Male

DRUGS (2)
  1. DUPIXENT [Suspect]
     Active Substance: DUPILUMAB
     Indication: Dermatitis atopic
     Dosage: 300 MG, QOW
     Route: 058
     Dates: start: 20201124
  2. RESCUE [Concomitant]
     Dosage: 1 OR 2 DAYS PER WEEK

REACTIONS (5)
  - Hospitalisation [Unknown]
  - Asthma [Unknown]
  - Impaired quality of life [Unknown]
  - Infection [Unknown]
  - Drug ineffective [Unknown]
